FAERS Safety Report 4866085-3 (Version None)
Quarter: 2005Q4

REPORT INFORMATION
  Report Type: 
  Country: None (occurrence: None)
  Receive Date: 20051227
  Receipt Date: 20051214
  Transmission Date: 20060501
  Serious: Yes (Hospitalization)
  Sender: FDA-Public Use
  Company Number: FR-BOEHRINGER INGELHEIM PHARMACEUTICALS, INC.-2005-FF-00921FF

PATIENT
  Age: 75 Year
  Sex: Female

DRUGS (8)
  1. PERSANTINE [Suspect]
     Route: 048
  2. STABLON [Concomitant]
     Indication: DEPRESSION
     Route: 048
  3. STILNOX [Concomitant]
     Route: 048
  4. EXELON [Concomitant]
     Indication: DEMENTIA ALZHEIMER'S TYPE
     Route: 048
  5. EQUANIL [Concomitant]
     Indication: DEPRESSION
     Route: 048
  6. ISOPTIN [Concomitant]
     Indication: OBSTRUCTION GASTRIC
     Route: 048
  7. MOTILIUM [Concomitant]
     Indication: NAUSEA
     Route: 048
  8. MOTILIUM [Concomitant]
     Indication: VOMITING

REACTIONS (10)
  - ABDOMINAL PAIN UPPER [None]
  - CONSTIPATION [None]
  - ERUCTATION [None]
  - FAECALOMA [None]
  - FOOD INTOLERANCE [None]
  - GENERAL PHYSICAL HEALTH DETERIORATION [None]
  - INTESTINAL OBSTRUCTION [None]
  - NAUSEA [None]
  - PYREXIA [None]
  - VOMITING [None]
